FAERS Safety Report 12050516 (Version 1)
Quarter: 2016Q1

REPORT INFORMATION
  Report Type: Spontaneous
  Country: US (occurrence: None)
  Receive Date: 20160208
  Receipt Date: 20160208
  Transmission Date: 20160526
  Serious: Yes (Hospitalization, Other)
  Sender: FDA-Public Use
  Company Number: None

PATIENT
  Age: 63 Year
  Sex: Female
  Weight: 90.72 kg

DRUGS (2)
  1. INVEGA [Suspect]
     Active Substance: PALIPERIDONE
     Indication: SCHIZOPHRENIFORM DISORDER
     Dosage: 256 MONTHLY MONTHLY INTO THE MUSCLE
     Route: 030
     Dates: start: 20160128
  2. INVEGA [Suspect]
     Active Substance: PALIPERIDONE
     Indication: BIPOLAR DISORDER
     Dosage: 256 MONTHLY MONTHLY INTO THE MUSCLE
     Route: 030
     Dates: start: 20160128

REACTIONS (7)
  - Hemiplegia [None]
  - Abasia [None]
  - Pain in extremity [None]
  - Mood altered [None]
  - Muscular weakness [None]
  - Wheelchair user [None]
  - General physical health deterioration [None]

NARRATIVE: CASE EVENT DATE: 20160204
